FAERS Safety Report 5834254-1 (Version None)
Quarter: 2008Q3

REPORT INFORMATION
  Report Type: 
  Country: None (occurrence: None)
  Receive Date: 20080805
  Receipt Date: 20080728
  Transmission Date: 20090109
  Serious: Yes (Other)
  Sender: FDA-Public Use
  Company Number: PHHY2008JP14334

PATIENT
  Age: 52 Year
  Sex: Female

DRUGS (5)
  1. CYCLOSPORINE [Suspect]
     Indication: RENAL TRANSPLANT
     Dosage: UNK
  2. SIMULECT [Suspect]
     Indication: RENAL TRANSPLANT
     Dosage: 20 MG, UNK
     Route: 065
  3. SIMULECT [Suspect]
     Indication: KIDNEY TRANSPLANT REJECTION
  4. TACROLIMUS [Concomitant]
     Indication: KIDNEY TRANSPLANT REJECTION
  5. STEROIDS NOS [Concomitant]
     Indication: KIDNEY TRANSPLANT REJECTION
     Dosage: PULSE THERAPY

REACTIONS (7)
  - HEMIPLEGIA [None]
  - KIDNEY TRANSPLANT REJECTION [None]
  - LEUKOENCEPHALOPATHY [None]
  - LEUKOPENIA [None]
  - MUSCULAR WEAKNESS [None]
  - PNEUMONIA [None]
  - VISUAL FIELD DEFECT [None]
